FAERS Safety Report 5952254-8 (Version None)
Quarter: 2008Q4

REPORT INFORMATION
  Report Type: 
  Country: None (occurrence: None)
  Receive Date: 20081113
  Receipt Date: 20081103
  Transmission Date: 20090506
  Serious: Yes (Hospitalization)
  Sender: FDA-Public Use
  Company Number: US-AVENTIS-200817584US

PATIENT
  Sex: Female

DRUGS (17)
  1. KETEK [Suspect]
     Indication: SINUSITIS
     Dosage: DOSE: UNK
     Route: 048
     Dates: start: 20050929, end: 20051013
  2. ACETAMINOPHEN [Suspect]
     Dosage: DOSE: UNK
  3. VENTOLIN [Concomitant]
     Dosage: DOSE: UNK
  4. PREDNISONE TAB [Concomitant]
     Dosage: DOSE: UNK
  5. ZYRTEC [Concomitant]
     Dosage: DOSE: UNK
  6. ATROVENT [Concomitant]
     Dosage: DOSE: UNK
  7. ADVAIR DISKUS 100/50 [Concomitant]
     Dosage: DOSE: UNK
  8. ATENOLOL [Concomitant]
     Dosage: DOSE: UNK
  9. AMITRIPTYLINE HCL [Concomitant]
     Dosage: DOSE: UNK
  10. PREMARIN [Concomitant]
     Dosage: DOSE: UNK
  11. MUCINEX [Concomitant]
     Dosage: DOSE: UNK
  12. NASONEX [Concomitant]
     Dosage: DOSE: UNK
  13. BEXTRA                             /01401501/ [Concomitant]
     Dosage: DOSE: UNK
  14. GLUCOSAMINE + CHONDROITIN [Concomitant]
     Dosage: DOSE: UNK
  15. ASPIRIN [Concomitant]
     Dosage: DOSE: UNK
  16. LIPITOR [Concomitant]
     Dosage: DOSE: UNK
  17. CAPSAICIN [Concomitant]
     Dosage: DOSE: UNK

REACTIONS (15)
  - ACUTE HEPATIC FAILURE [None]
  - BLOOD ALKALINE PHOSPHATASE INCREASED [None]
  - BLOOD BILIRUBIN INCREASED [None]
  - COAGULOPATHY [None]
  - FOOD INTOLERANCE [None]
  - INTERNATIONAL NORMALISED RATIO INCREASED [None]
  - JAUNDICE [None]
  - LIVER FUNCTION TEST ABNORMAL [None]
  - MENTAL STATUS CHANGES [None]
  - METABOLIC ENCEPHALOPATHY [None]
  - OCULAR ICTERUS [None]
  - RESPIRATORY ALKALOSIS [None]
  - RESPIRATORY FAILURE [None]
  - THROMBOCYTOPENIA [None]
  - WHITE BLOOD CELL COUNT INCREASED [None]
